FAERS Safety Report 6621106-2 (Version None)
Quarter: 2010Q1

REPORT INFORMATION
  Report Type: 
  Country: None (occurrence: None)
  Receive Date: 20100309
  Receipt Date: 20090729
  Transmission Date: 20100710
  Serious: No
  Sender: FDA-Public Use
  Company Number: US-TYCO HEALTHCARE/MALLINCKRODT-T200901433

PATIENT
  Age: 73 Year
  Sex: Female

DRUGS (2)
  1. SODIUM IODIDE I 123 [Suspect]
     Indication: SCAN THYROID GLAND
     Dosage: UNK UCI, SINGLE
     Route: 048
     Dates: start: 20090727, end: 20090727
  2. SODIUM IODIDE I 123 [Suspect]
     Dosage: UNK
     Route: 048
     Dates: start: 20090727, end: 20090727

REACTIONS (2)
  - HYPOAESTHESIA [None]
  - PARAESTHESIA ORAL [None]
